FAERS Safety Report 13102094 (Version 1)
Quarter: 2017Q1

REPORT INFORMATION
  Report Type: Spontaneous
  Country: US (occurrence: US)
  Receive Date: 20170110
  Receipt Date: 20170110
  Transmission Date: 20170428
  Serious: No
  Sender: FDA-Public Use
  Company Number: US-BAYER-2017-004868

PATIENT
  Sex: Female

DRUGS (1)
  1. CLIMARA PRO [Suspect]
     Active Substance: ESTRADIOL\LEVONORGESTREL
     Dosage: 50/140 MG
     Route: 062

REACTIONS (6)
  - Abdominal discomfort [None]
  - Breast swelling [None]
  - Abdominal pain [None]
  - Breast pain [None]
  - Product quality issue [None]
  - Off label use [None]
